FAERS Safety Report 4781600-6 (Version None)
Quarter: 2005Q3

REPORT INFORMATION
  Report Type: 
  Country: None (occurrence: None)
  Receive Date: 20050927
  Receipt Date: 20050919
  Transmission Date: 20060218
  Serious: Yes (Hospitalization)
  Sender: FDA-Public Use
  Company Number: 143191USA

PATIENT
  Age: 65 Year
  Sex: Male

DRUGS (2)
  1. PIMOZIDE [Suspect]
     Indication: SCHIZOPHRENIA
     Dosage: 80 MILLIGRAM
  2. THIORIDAZINE [Suspect]
     Indication: SCHIZOPHRENIA
     Dosage: 100 MILLIGRAM
     Dates: end: 19850101

REACTIONS (4)
  - DELUSION [None]
  - HALLUCINATION [None]
  - OVERDOSE [None]
  - SUICIDE ATTEMPT [None]
